FAERS Safety Report 9070632 (Version 1)
Quarter: 2013Q1

REPORT INFORMATION
  Report Type: Report from Study
  Country: US (occurrence: US)
  Receive Date: 20130129
  Receipt Date: 20130129
  Transmission Date: 20140127
  Serious: No
  Sender: FDA-Public Use
  Company Number: US-ABBOTT-12P-163-0925178-00

PATIENT
  Age: 42 None
  Sex: Female

DRUGS (13)
  1. HUMIRA 40 MG/0.8 ML PEN [Suspect]
     Indication: RHEUMATOID ARTHRITIS
     Dates: start: 20120330
  2. IBUPROFEN [Concomitant]
     Indication: RHEUMATOID ARTHRITIS
     Dosage: 600 MG, ONE TAB THREE TIMES DAILY
     Route: 048
  3. IBUPROFEN [Concomitant]
     Indication: FIBROMYALGIA
  4. IBUPROFEN [Concomitant]
     Indication: NEUROPATHY PERIPHERAL
  5. IBUPROFEN [Concomitant]
     Indication: PERONEAL MUSCULAR ATROPHY
  6. PRILOSEC [Concomitant]
     Indication: DYSPEPSIA
     Dosage: 20 MG, ONE TAB DAILY
     Route: 048
  7. FOLIC ACID [Concomitant]
     Indication: RHEUMATOID ARTHRITIS
     Dosage: 1 MG DAILY
     Route: 048
  8. TRAMADOL [Concomitant]
     Indication: PAIN
     Route: 048
  9. CYMBALTA [Concomitant]
     Indication: FIBROMYALGIA
     Dosage: IN THE MORNING
     Route: 048
  10. LYRICA [Concomitant]
     Indication: FIBROMYALGIA
     Dosage: IN THE MORNING
     Route: 048
  11. METHOTREXATE [Concomitant]
     Indication: RHEUMATOID ARTHRITIS
     Dosage: 2.5 MG, 3 TABS BIWEEKLY
  12. VALIUM [Concomitant]
     Indication: ANXIETY
     Route: 048
  13. LANACAINE [Concomitant]
     Indication: PRODUCT USED FOR UNKNOWN INDICATION

REACTIONS (8)
  - Oropharyngeal pain [Not Recovered/Not Resolved]
  - Nasal discharge discolouration [Not Recovered/Not Resolved]
  - Sinusitis [Recovered/Resolved]
  - Pharyngeal oedema [Not Recovered/Not Resolved]
  - Nasopharyngitis [Recovered/Resolved]
  - Rhinorrhoea [Recovered/Resolved]
  - Injection site bruising [Recovered/Resolved]
  - Headache [Recovered/Resolved]
